FAERS Safety Report 7749733-X (Version None)
Quarter: 2011Q3

REPORT INFORMATION
  Report Type: 
  Country: None (occurrence: None)
  Receive Date: 20110914
  Receipt Date: 20110831
  Transmission Date: 20111222
  Serious: No
  Sender: FDA-Public Use
  Company Number: DE-ROCHE-799342

PATIENT
  Sex: Female

DRUGS (4)
  1. XENICAL [Suspect]
     Route: 048
     Dates: start: 20110813, end: 20110813
  2. XENICAL [Suspect]
     Dosage: BATCH/LOT NUMBER: M1852M1
     Route: 048
     Dates: start: 20110812, end: 20110812
  3. L-THYROXIN 100 [Concomitant]
     Indication: HYPOTHYROIDISM
     Route: 048
     Dates: start: 19890101
  4. DEHYDRO SANOL TRI [Concomitant]
     Indication: HYPERTENSION
     Route: 048
     Dates: start: 20110301

REACTIONS (4)
  - NAUSEA [None]
  - TACHYCARDIA [None]
  - ABDOMINAL DISCOMFORT [None]
  - HYPERHIDROSIS [None]
